FAERS Safety Report 25990749 (Version 2)
Quarter: 2025Q4

REPORT INFORMATION
  Report Type: Spontaneous
  Country: US (occurrence: US)
  Receive Date: 20251103
  Receipt Date: 20251113
  Transmission Date: 20260118
  Serious: Yes (Other)
  Sender: ABBVIE
  Company Number: US-ABBVIE-6527453

PATIENT
  Age: 75 Year
  Sex: Female
  Weight: 43.091 kg

DRUGS (2)
  1. SYNTHROID [Suspect]
     Active Substance: LEVOTHYROXINE SODIUM
     Indication: Graves^ disease
     Dosage: FORM STRENGTH: 88 MICROGRAM?TAKES ONE TABLET EVERY DAY
     Route: 048
     Dates: start: 2023
  2. LOSARTAN [Concomitant]
     Active Substance: LOSARTAN
     Indication: Cardiac operation
     Dosage: 25 MILLIGRAM

REACTIONS (12)
  - Thyroidectomy [Unknown]
  - Hepatic pain [Recovered/Resolved]
  - Asthenia [Not Recovered/Not Resolved]
  - Blood thyroid stimulating hormone increased [Not Recovered/Not Resolved]
  - Dizziness [Not Recovered/Not Resolved]
  - Alopecia [Not Recovered/Not Resolved]
  - Feeling abnormal [Unknown]
  - Product colour issue [Unknown]
  - Off label use [Unknown]
  - Ophthalmic migraine [Unknown]
  - Product dispensing error [Unknown]
  - Drug ineffective [Unknown]

NARRATIVE: CASE EVENT DATE: 20250801
